FAERS Safety Report 24665611 (Version 3)
Quarter: 2025Q2

REPORT INFORMATION
  Report Type: Report from Study
  Country: GB (occurrence: GB)
  Receive Date: 20241126
  Receipt Date: 20250603
  Transmission Date: 20250716
  Serious: Yes (Other)
  Sender: NOVARTIS
  Company Number: GB-002147023-NVSC2024GB225766

PATIENT
  Sex: Female

DRUGS (2)
  1. COSENTYX [Suspect]
     Active Substance: SECUKINUMAB
     Indication: Hidradenitis
     Dosage: 300 MG, QMO
     Route: 058
     Dates: start: 20240929
  2. COSENTYX [Suspect]
     Active Substance: SECUKINUMAB
     Route: 058
     Dates: start: 20250225

REACTIONS (3)
  - Lower respiratory tract infection [Unknown]
  - Pneumonia [Unknown]
  - Hepatomegaly [Unknown]
